FAERS Safety Report 8342034 (Version 27)
Quarter: 2022Q3

REPORT INFORMATION
  Report Type: Spontaneous
  Country: US (occurrence: US)
  Receive Date: 20120118
  Receipt Date: 20220821
  Transmission Date: 20221026
  Serious: Yes (Hospitalization, Other)
  Sender: FDA-Public Use
  Company Number: US-GLAXOSMITHKLINE-A0961811A

PATIENT
  Age: 12 Year
  Sex: Female
  Weight: 37.188 kg

DRUGS (11)
  1. FLOLAN [Suspect]
     Active Substance: EPOPROSTENOL SODIUM
     Indication: Pulmonary arterial hypertension
     Dosage: 65 NG/KG/MIN AT 45000 NG/ML CONCENTRATION 81 ML/DAY PUMP RATE AND 1.5 MG VIAL STRENGTH
     Route: 042
     Dates: start: 20080617
  2. FLOLAN [Suspect]
     Active Substance: EPOPROSTENOL SODIUM
     Indication: Sickle cell anaemia
     Dosage: UNK
     Dates: start: 20080617
  3. FLOLAN [Suspect]
     Active Substance: EPOPROSTENOL SODIUM
     Indication: Cor pulmonale chronic
     Dosage: UNK
     Dates: start: 20080617
  4. FLOLAN [Suspect]
     Active Substance: EPOPROSTENOL SODIUM
     Dosage: UNK
     Dates: start: 20080617
  5. FLOLAN [Suspect]
     Active Substance: EPOPROSTENOL SODIUM
     Dosage: UNK
     Dates: start: 20080617
  6. FLOLAN [Suspect]
     Active Substance: EPOPROSTENOL SODIUM
     Dosage: 69 NG/KG/MIN AT 45000 NG/ML CONCENTRATION 82 ML/DAY PUMP RATE 1.5 MG VIAL STRENGTH
     Route: 042
     Dates: start: 20140911
  7. ADCIRCA [Concomitant]
     Active Substance: TADALAFIL
  8. REVATIO [Concomitant]
     Active Substance: SILDENAFIL CITRATE
  9. WARFARIN [Concomitant]
     Active Substance: WARFARIN
  10. LETAIRIS [Concomitant]
     Active Substance: AMBRISENTAN
  11. SILDENAFIL [Concomitant]
     Active Substance: SILDENAFIL

REACTIONS (10)
  - Pneumonia [Unknown]
  - Sickle cell disease [Recovering/Resolving]
  - Hospitalisation [Unknown]
  - Upper respiratory tract infection [Recovered/Resolved]
  - Ill-defined disorder [Recovered/Resolved]
  - Sputum discoloured [Recovered/Resolved]
  - Pyrexia [Recovered/Resolved]
  - Back pain [Not Recovered/Not Resolved]
  - Skin disorder [Recovering/Resolving]
  - Rhinovirus infection [Unknown]

NARRATIVE: CASE EVENT DATE: 20120113
